FAERS Safety Report 11095427 (Version 1)
Quarter: 2015Q2

REPORT INFORMATION
  Report Type: Report from Study
  Country: CO (occurrence: CO)
  Receive Date: 20150506
  Receipt Date: 20150506
  Transmission Date: 20150821
  Serious: Yes (Hospitalization, Other)
  Sender: FDA-Public Use
  Company Number: CO-BIOMARINAP-CO-2015-106270

PATIENT
  Age: 7 Year
  Sex: Male
  Weight: 17 kg

DRUGS (1)
  1. ALDURAZYME [Suspect]
     Active Substance: LARONIDASE
     Indication: MUCOPOLYSACCHARIDOSIS I
     Dosage: 11.6 MG, QW
     Route: 042
     Dates: start: 2009

REACTIONS (8)
  - Blindness [Unknown]
  - Hypoacusis [Unknown]
  - Cardiomyopathy [Unknown]
  - Increased bronchial secretion [Unknown]
  - Pulmonary valve stenosis [Unknown]
  - Oxygen saturation decreased [Unknown]
  - Pneumonia viral [Not Recovered/Not Resolved]
  - Pyrexia [Unknown]
